FAERS Safety Report 6683307-7 (Version None)
Quarter: 2010Q2

REPORT INFORMATION
  Report Type: 
  Country: None (occurrence: None)
  Receive Date: 20100415
  Receipt Date: 20100412
  Transmission Date: 20101027
  Serious: Yes (Hospitalization)
  Sender: FDA-Public Use
  Company Number: GXKR2009DE08878

PATIENT
  Age: 72 Year
  Sex: Male
  Weight: 90 kg

DRUGS (14)
  1. BISOPROLOL 1A PHARMA (NGX) [Suspect]
     Indication: HYPERTENSION
     Dosage: 2.5 MG, BID
     Route: 048
     Dates: start: 20051201
  2. HCT 1A PHARMA (NGX) [Suspect]
     Indication: HYPERTENSION
     Dosage: 12.5 MG, QD
     Route: 048
     Dates: start: 20000101
  3. ARICEPT [Suspect]
     Indication: DEMENTIA
     Dosage: 5 MG, QD
     Route: 048
     Dates: start: 20040101
  4. DIPIPERON [Suspect]
     Indication: CEREBROVASCULAR ACCIDENT
     Dosage: 20 MG, QD
     Route: 048
     Dates: start: 20040101
  5. AKINETON [Concomitant]
     Indication: CEREBROVASCULAR ACCIDENT
     Dosage: 2 MG, QD
     Route: 048
     Dates: start: 20040101
  6. ANTELEPSIN [Concomitant]
     Route: 048
  7. ATACAND [Concomitant]
     Route: 048
  8. CONVULEX ^PROMONTA LUNDBECK^ [Concomitant]
     Route: 048
  9. DAPOTUM D FOR INJECTION [Concomitant]
     Route: 017
  10. INSULIN ACTRAPID ^NOVO NORDISK^ [Concomitant]
     Route: 058
  11. INSULIN PROTAPHAN HM (GE) [Concomitant]
     Route: 058
  12. PANTOPRAZOLE SODIUM [Concomitant]
     Route: 048
  13. PLAVIX [Concomitant]
     Route: 048
  14. RAMIPRIL [Concomitant]
     Route: 048

REACTIONS (2)
  - BRADYCARDIA [None]
  - HYPONATRAEMIA [None]
